FAERS Safety Report 6131238-3 (Version None)
Quarter: 2009Q1

REPORT INFORMATION
  Report Type: 
  Country: None (occurrence: None)
  Receive Date: 20090325
  Receipt Date: 20080428
  Transmission Date: 20090719
  Serious: Yes (Life-Threatening)
  Sender: FDA-Public Use
  Company Number: US-BRISTOL-MYERS SQUIBB COMPANY-14057327

PATIENT
  Age: 48 Year
  Sex: Male

DRUGS (5)
  1. ERBITUX [Suspect]
     Indication: HEAD AND NECK CANCER
     Route: 042
     Dates: start: 20080124, end: 20080124
  2. RADIOTHERAPY [Suspect]
     Indication: HEAD AND NECK CANCER
  3. XANAX [Concomitant]
     Dates: start: 20080123
  4. FLEXERIL [Concomitant]
     Dates: start: 20080123
  5. OXYCODONE HCL [Concomitant]
     Dates: start: 20080123

REACTIONS (1)
  - ANAPHYLACTIC REACTION [None]
